FAERS Safety Report 25196890 (Version 4)
Quarter: 2025Q2

REPORT INFORMATION
  Report Type: Spontaneous
  Country: US (occurrence: US)
  Receive Date: 20250415
  Receipt Date: 20250616
  Transmission Date: 20250716
  Serious: Yes (Hospitalization)
  Sender: SYNDAX
  Company Number: US-SYNDAX PHARMACEUTICALS, INC.-2025US000342

PATIENT
  Sex: Female
  Weight: 78.485 kg

DRUGS (1)
  1. REVUFORJ [Suspect]
     Active Substance: REVUMENIB CITRATE
     Indication: Acute myeloid leukaemia
     Dosage: 160 MILLIGRAM, BID
     Route: 048
     Dates: start: 20250404

REACTIONS (6)
  - Full blood count decreased [Unknown]
  - Platelet count decreased [Unknown]
  - Pain [Unknown]
  - Rash [Unknown]
  - Product dose omission issue [Unknown]
  - Furuncle [Unknown]
